FAERS Safety Report 23407110 (Version 1)
Quarter: 2024Q1

REPORT INFORMATION
  Report Type: Spontaneous
  Country: CH (occurrence: CH)
  Receive Date: 20240116
  Receipt Date: 20240116
  Transmission Date: 20240409
  Serious: Yes (Hospitalization, Other)
  Sender: FDA-Public Use
  Company Number: CH-JNJFOC-20231268180

PATIENT
  Age: 32 Year
  Sex: Male

DRUGS (1)
  1. REMICADE [Suspect]
     Active Substance: INFLIXIMAB
     Indication: Colitis ulcerative
     Route: 041

REACTIONS (7)
  - Colitis ulcerative [Recovering/Resolving]
  - Diarrhoea [Unknown]
  - Epistaxis [Unknown]
  - Abdominal pain upper [Recovering/Resolving]
  - Hyperalbuminaemia [Unknown]
  - Inflammation [Unknown]
  - COVID-19 [Unknown]
